FAERS Safety Report 12280705 (Version 1)
Quarter: 2016Q2

REPORT INFORMATION
  Report Type: Spontaneous
  Country: US (occurrence: None)
  Receive Date: 20160418
  Receipt Date: 20160418
  Transmission Date: 20160815
  Serious: Yes (Life-Threatening, Disabling, Other)
  Sender: FDA-Public Use
  Company Number: None

PATIENT
  Age: 42 Year
  Sex: Male
  Weight: 83.92 kg

DRUGS (1)
  1. PROPECIA [Suspect]
     Active Substance: FINASTERIDE
     Dosage: 1 TABLET IN THE MORNING TAKEN BY MOUTH
     Route: 048

REACTIONS (11)
  - Erectile dysfunction [None]
  - Muscle atrophy [None]
  - Poisoning [None]
  - Stress [None]
  - Insomnia [None]
  - Myalgia [None]
  - Fatigue [None]
  - Gastrointestinal disorder [None]
  - Headache [None]
  - Therapy cessation [None]
  - Nervous system disorder [None]

NARRATIVE: CASE EVENT DATE: 20160101
